FAERS Safety Report 7815091 (Version 3)
Quarter: 2015Q1

REPORT INFORMATION
  Report Type: Spontaneous
  Country: US (occurrence: US)
  Receive Date: 20110216
  Receipt Date: 20150206
  Transmission Date: 20150721
  Serious: Yes (Other)
  Sender: FDA-Public Use
  Company Number: US-ROCHE-735629

PATIENT
  Age: 46 Year
  Sex: Female
  Weight: 63 kg

DRUGS (1)
  1. ACCUTANE [Suspect]
     Active Substance: ISOTRETINOIN
     Indication: ACNE
     Route: 065
     Dates: start: 19900101, end: 19910101

REACTIONS (7)
  - Suicidal ideation [Unknown]
  - Irritable bowel syndrome [Unknown]
  - Arthritis [Unknown]
  - Colitis ulcerative [Unknown]
  - Gastrointestinal injury [Unknown]
  - Deep vein thrombosis [Unknown]
  - Depression [Unknown]

NARRATIVE: CASE EVENT DATE: 1992
